FAERS Safety Report 6115465-7 (Version None)
Quarter: 2009Q1

REPORT INFORMATION
  Report Type: 
  Country: None (occurrence: None)
  Receive Date: 20090313
  Receipt Date: 20090306
  Transmission Date: 20090719
  Serious: Yes (Other)
  Sender: FDA-Public Use
  Company Number: GB-AMGEN-UK324661

PATIENT
  Sex: Male

DRUGS (5)
  1. NEULASTA [Suspect]
     Indication: CHEMOTHERAPY
     Route: 065
     Dates: start: 20070312
  2. SEPTRIN [Suspect]
  3. UNSPECIFIED ANTINEOPLASTIC AGENT [Concomitant]
     Route: 065
  4. REVLIMID [Concomitant]
  5. DEXAMETHASONE [Concomitant]

REACTIONS (1)
  - RASH ERYTHEMATOUS [None]
